FAERS Safety Report 9446359 (Version 1)
Quarter: 2013Q3

REPORT INFORMATION
  Report Type: Spontaneous
  Country: US (occurrence: US)
  Receive Date: 20130807
  Receipt Date: 20130807
  Transmission Date: 20140515
  Serious: No
  Sender: FDA-Public Use
  Company Number: US-AMGEN-USASP2013049024

PATIENT
  Age: 66 Year
  Sex: Male

DRUGS (3)
  1. ENBREL [Suspect]
     Indication: PSORIASIS
     Dosage: UNK
  2. FOSAMAX [Suspect]
     Dosage: UNK
  3. FORTEO [Suspect]

REACTIONS (3)
  - Osteoporosis [Unknown]
  - Hypercalciuria [Unknown]
  - Drug ineffective [Recovered/Resolved]
